FAERS Safety Report 9969243 (Version 1)
Quarter: 2014Q1

REPORT INFORMATION
  Report Type: Spontaneous
  Country: IN (occurrence: IN)
  Receive Date: 20140306
  Receipt Date: 20140306
  Transmission Date: 20141002
  Serious: Yes (Other)
  Sender: FDA-Public Use
  Company Number: IN-ROCHE-1359924

PATIENT
  Age: 64 Year
  Sex: Male

DRUGS (6)
  1. LUCENTIS [Suspect]
     Indication: DIABETIC RETINAL OEDEMA
     Dosage: STRENGTH : 0.5/100MG/ML
     Route: 050
     Dates: start: 201311
  2. LUCENTIS [Suspect]
     Indication: INTRAOCULAR PRESSURE INCREASED
     Route: 050
     Dates: start: 20140219
  3. GLYFORMIN [Concomitant]
  4. ADRIAMYCIN [Concomitant]
  5. INSULIN [Concomitant]
  6. CLAVIX [Concomitant]

REACTIONS (2)
  - Cataract [Unknown]
  - Vision blurred [Recovering/Resolving]
